FAERS Safety Report 4987213-5 (Version None)
Quarter: 2006Q2

REPORT INFORMATION
  Report Type: 
  Country: None (occurrence: None)
  Receive Date: 20060501
  Receipt Date: 20060303
  Transmission Date: 20061013
  Serious: Yes (Hospitalization, Other)
  Sender: FDA-Public Use
  Company Number: US-MERCK-0603USA00740

PATIENT
  Age: 75 Year
  Sex: Female
  Weight: 77 kg

DRUGS (3)
  1. ZETIA [Suspect]
     Indication: HYPERLIPIDAEMIA
     Route: 048
     Dates: start: 20051001, end: 20051201
  2. ZETIA [Suspect]
     Indication: BLOOD CHOLESTEROL INCREASED
     Route: 048
     Dates: start: 20051001, end: 20051201
  3. DECADRON [Concomitant]
     Route: 065

REACTIONS (2)
  - DIARRHOEA [None]
  - IDIOPATHIC THROMBOCYTOPENIC PURPURA [None]
